FAERS Safety Report 16363487 (Version 3)
Quarter: 2019Q2

REPORT INFORMATION
  Report Type: Spontaneous
  Country: US (occurrence: US)
  Receive Date: 20190528
  Receipt Date: 20190628
  Transmission Date: 20190711
  Serious: Yes (Other)
  Sender: FDA-Public Use
  Company Number: US-JNJFOC-20190530090

PATIENT
  Sex: Female

DRUGS (5)
  1. XARELTO [Suspect]
     Active Substance: RIVAROXABAN
     Indication: ATRIAL FLUTTER
  2. XARELTO [Suspect]
     Active Substance: RIVAROXABAN
     Indication: ATRIAL FIBRILLATION
  3. ASPIRIN. [Suspect]
     Active Substance: ASPIRIN
     Indication: VENTRICULAR TACHYCARDIA
     Route: 065
     Dates: end: 201805
  4. OMEGA 3 FISH OIL [Concomitant]
     Active Substance: FISH OIL\OMEGA-3 FATTY ACIDS
     Route: 065
     Dates: start: 2019
  5. XARELTO [Suspect]
     Active Substance: RIVAROXABAN
     Indication: CEREBROVASCULAR ACCIDENT PROPHYLAXIS
     Route: 048
     Dates: start: 201804

REACTIONS (7)
  - Contusion [Recovered/Resolved]
  - Bronchitis [Unknown]
  - Haemorrhage [Recovered/Resolved]
  - Atrial fibrillation [Unknown]
  - Atrial flutter [Unknown]
  - Epistaxis [Recovered/Resolved]
  - Mouth haemorrhage [Recovered/Resolved]

NARRATIVE: CASE EVENT DATE: 2018
